FAERS Safety Report 8191694-6 (Version None)
Quarter: 2012Q1

REPORT INFORMATION
  Report Type: 
  Country: None (occurrence: None)
  Receive Date: 20120307
  Receipt Date: 20110503
  Transmission Date: 20120608
  Serious: No
  Sender: FDA-Public Use
  Company Number: US-ASTRAZENECA-2011SE25635

PATIENT
  Age: 50 Year
  Sex: Female

DRUGS (3)
  1. ZOMIG [Suspect]
     Indication: MIGRAINE
     Route: 048
  2. NASACORT [Concomitant]
  3. ZOMIG [Suspect]
     Indication: SINUS DISORDER
     Route: 048

REACTIONS (6)
  - DRY MOUTH [None]
  - HANGOVER [None]
  - FATIGUE [None]
  - OFF LABEL USE [None]
  - LETHARGY [None]
  - EPISTAXIS [None]
